FAERS Safety Report 23392724 (Version 1)
Quarter: 2024Q1

REPORT INFORMATION
  Report Type: Spontaneous
  Country: US (occurrence: US)
  Receive Date: 20240111
  Receipt Date: 20240111
  Transmission Date: 20240409
  Serious: No
  Sender: FDA-Public Use
  Company Number: US-REGENERON PHARMACEUTICALS, INC.-2023-097611

PATIENT
  Sex: Female

DRUGS (2)
  1. EYLEA [Suspect]
     Active Substance: AFLIBERCEPT
     Indication: Macular degeneration
     Dosage: UNK, FORMULATION: UNKNOWN
     Route: 031
  2. EYLEA [Suspect]
     Active Substance: AFLIBERCEPT
     Dosage: UNK, FORMULATION: UNKNOWN
     Route: 031
     Dates: start: 20230216, end: 20230216

REACTIONS (6)
  - Injection site reaction [Unknown]
  - Eye irritation [Unknown]
  - Pain [Unknown]
  - Disturbance in attention [Unknown]
  - Impaired work ability [Unknown]
  - Visual impairment [Unknown]
